FAERS Safety Report 9664907 (Version 2)
Quarter: 2013Q4

REPORT INFORMATION
  Report Type: Spontaneous
  Country: US (occurrence: US)
  Receive Date: 20131101
  Receipt Date: 20131111
  Transmission Date: 20140711
  Serious: Yes (Life-Threatening, Hospitalization)
  Sender: FDA-Public Use
  Company Number: US-MYLANLABS-2013S1023335

PATIENT
  Age: 30 Year
  Sex: Female

DRUGS (14)
  1. LIDOCAINE HCL [Suspect]
     Dosage: 60 MG
     Route: 042
  2. EPINEPHRINE [Suspect]
     Dosage: 1 MG
     Route: 042
  3. EPINEPHRINE [Suspect]
     Dosage: 8 UG/MIN
  4. LORAZEPAM [Suspect]
     Indication: CONVULSION
     Dosage: 2 MG
     Route: 042
  5. AMIODARONE HCL [Suspect]
     Dosage: 150 MG OVER 10 MINUTES
     Route: 040
  6. DIAZEPAM [Suspect]
     Dosage: 2 DOSES OF 5 MG
     Route: 042
  7. PHENYLEPHRINE [Suspect]
     Indication: BLOOD PRESSURE
     Dosage: 100 UG/MIN
  8. CALCIUM CHLORIDE [Suspect]
     Dosage: 1 G
  9. SODIUM BICARBONATE [Suspect]
     Dosage: 100 MEQ
  10. NOREPINEPHRINE [Suspect]
     Dosage: 30 UG/MIN
  11. NORMAL SALINE [Suspect]
     Dosage: 1 L
  12. DIPHENHYDRAMINE [Suspect]
  13. SUCCINYLCHOLINE CHLORIDE [Concomitant]
     Dosage: 100 MG
  14. ETOMIDATE [Concomitant]
     Dosage: 20 MG

REACTIONS (6)
  - Drug ineffective [Unknown]
  - Overdose [Unknown]
  - Toxicity to various agents [Unknown]
  - Convulsion [Unknown]
  - Tachycardia [Unknown]
  - Circulatory collapse [Unknown]
